FAERS Safety Report 11018623 (Version 2)
Quarter: 2015Q2

REPORT INFORMATION
  Report Type: Spontaneous
  Country: US (occurrence: US)
  Receive Date: 20150412
  Receipt Date: 20150524
  Transmission Date: 20150821
  Serious: Yes (Other)
  Sender: FDA-Public Use
  Company Number: US-JNJFOC-20131207028

PATIENT
  Sex: Female

DRUGS (4)
  1. DOXORUBICIN HYDROCHLORIDE. [Suspect]
     Active Substance: DOXORUBICIN HYDROCHLORIDE
     Indication: RHABDOMYOSARCOMA
     Dosage: DOXORUBICIN WAS DOSED AT 20MG/M2 FOR 3DAYS
     Route: 042
  2. IFOSFAMIDE. [Suspect]
     Active Substance: IFOSFAMIDE
     Indication: RHABDOMYOSARCOMA
     Dosage: 1200 TO 1500 MG/M2 FOR 3 DAYS
     Route: 065
  3. MESNA. [Concomitant]
     Active Substance: MESNA
     Indication: RHABDOMYOSARCOMA
     Dosage: AT VARIABLE DOSES
     Route: 065
  4. DOXORUBICIN HYDROCHLORIDE. [Suspect]
     Active Substance: DOXORUBICIN HYDROCHLORIDE
     Indication: RHABDOMYOSARCOMA
     Route: 042

REACTIONS (3)
  - Neutropenia [Unknown]
  - Pyrexia [Unknown]
  - Product use issue [Unknown]
